FAERS Safety Report 16895336 (Version 1)
Quarter: 2019Q4

REPORT INFORMATION
  Report Type: Spontaneous
  Country: US (occurrence: US)
  Receive Date: 20190814
  Receipt Date: 20190814
  Transmission Date: 20200122
  Serious: Yes (Hospitalization)
  Sender: FDA-Public Use
  Company Number: None

PATIENT
  Age: 62 Year
  Sex: Male
  Weight: 88 kg

DRUGS (1)
  1. CYCLOPHOSPHAMIDE (26271) [Suspect]
     Active Substance: CYCLOPHOSPHAMIDE
     Indication: BACK PAIN

REACTIONS (2)
  - Condition aggravated [None]
  - Back pain [None]

NARRATIVE: CASE EVENT DATE: 20190608
